FAERS Safety Report 24455268 (Version 2)
Quarter: 2024Q4

REPORT INFORMATION
  Report Type: Report from Study
  Country: US (occurrence: US)
  Receive Date: 20241017
  Receipt Date: 20241018
  Transmission Date: 20250115
  Serious: No
  Sender: ROCHE
  Company Number: US-ROCHE-3476974

PATIENT
  Age: 62 Year
  Sex: Female

DRUGS (1)
  1. RITUXAN [Suspect]
     Active Substance: RITUXIMAB
     Indication: Rheumatoid arthritis
     Route: 041

REACTIONS (6)
  - Essential hypertension [Unknown]
  - Electrocardiogram abnormal [Unknown]
  - Cardiac aneurysm [Unknown]
  - Vitamin D deficiency [Unknown]
  - Immunodeficiency [Unknown]
  - Polyneuropathy [Unknown]
